FAERS Safety Report 15758391 (Version 1)
Quarter: 2018Q4

REPORT INFORMATION
  Report Type: Spontaneous
  Country: US (occurrence: US)
  Receive Date: 20181225
  Receipt Date: 20181225
  Transmission Date: 20190205
  Serious: Yes (Hospitalization, Other)
  Sender: FDA-Public Use
  Company Number: US-ASTRAZENECA-2018SF68042

PATIENT
  Age: 42 Year
  Sex: Male
  Weight: 83.9 kg

DRUGS (4)
  1. PULMICORT FLEXHALER [Suspect]
     Active Substance: BUDESONIDE
     Indication: CHRONIC OBSTRUCTIVE PULMONARY DISEASE
     Dosage: 180.0UG UNKNOWN
     Route: 055
     Dates: start: 2018
  2. SYMBICORT [Suspect]
     Active Substance: BUDESONIDE\FORMOTEROL FUMARATE DIHYDRATE
     Indication: CHRONIC OBSTRUCTIVE PULMONARY DISEASE
     Dosage: TWO TIMES A DAY
     Route: 055
     Dates: start: 2017, end: 2017
  3. LISINOPRIL. [Suspect]
     Active Substance: LISINOPRIL
     Route: 048
     Dates: start: 2007
  4. PHENOBARBITAL. [Concomitant]
     Active Substance: PHENOBARBITAL
     Route: 065

REACTIONS (9)
  - Diabetes mellitus [Not Recovered/Not Resolved]
  - Visual impairment [Unknown]
  - Diabetic coma [Unknown]
  - Dyspnoea [Unknown]
  - Brain neoplasm malignant [Not Recovered/Not Resolved]
  - Device issue [Unknown]
  - Hypertension [Not Recovered/Not Resolved]
  - Intentional device misuse [Unknown]
  - Product dose omission [Unknown]

NARRATIVE: CASE EVENT DATE: 2007
